FAERS Safety Report 25548380 (Version 1)
Quarter: 2025Q3

REPORT INFORMATION
  Report Type: Spontaneous
  Country: US (occurrence: None)
  Receive Date: 20250711
  Receipt Date: 20250711
  Transmission Date: 20251020
  Serious: Yes (Hospitalization, Disabling, Other)
  Sender: FDA-CTU
  Company Number: None

PATIENT
  Age: 49 Year
  Sex: Female

DRUGS (2)
  1. VENLAFAXINE [Suspect]
     Active Substance: VENLAFAXINE HYDROCHLORIDE
     Indication: Stress
  2. VENLAFAXINE [Suspect]
     Active Substance: VENLAFAXINE HYDROCHLORIDE
     Indication: Depressed mood

REACTIONS (12)
  - Tremor [None]
  - Bruxism [None]
  - Dyskinesia [None]
  - Temperature intolerance [None]
  - Blood pressure increased [None]
  - Headache [None]
  - Vertigo [None]
  - Balance disorder [None]
  - Anxiety [None]
  - Musculoskeletal stiffness [None]
  - Erythromelalgia [None]
  - Peripheral swelling [None]

NARRATIVE: CASE EVENT DATE: 20230301
